FAERS Safety Report 14772162 (Version 10)
Quarter: 2018Q4

REPORT INFORMATION
  Report Type: Report from Study
  Country: None (occurrence: US)
  Receive Date: 20180418
  Receipt Date: 20181218
  Transmission Date: 20190204
  Serious: Yes (Other)
  Sender: FDA-Public Use
  Company Number: US-ABBVIE-18K-163-2241667-00

PATIENT
  Age: 68 Year
  Sex: Male
  Weight: 81.72 kg

DRUGS (4)
  1. CORTISONE [Suspect]
     Active Substance: CORTISONE\HYDROCORTISONE
     Indication: PRODUCT USED FOR UNKNOWN INDICATION
     Route: 065
  2. HUMIRA [Suspect]
     Active Substance: ADALIMUMAB
     Indication: RHEUMATOID ARTHRITIS
     Route: 058
     Dates: start: 20180112, end: 2018
  3. HUMIRA [Suspect]
     Active Substance: ADALIMUMAB
     Route: 058
     Dates: start: 2018
  4. MONOCYCLINE [Concomitant]
     Indication: PRODUCT USED FOR UNKNOWN INDICATION

REACTIONS (21)
  - Fatigue [Recovered/Resolved]
  - Acne [Recovered/Resolved]
  - Pruritus [Recovered/Resolved]
  - Therapeutic response shortened [Unknown]
  - Pain [Recovered/Resolved]
  - Fatigue [Unknown]
  - Inflammation [Unknown]
  - Asthenia [Unknown]
  - Arthralgia [Not Recovered/Not Resolved]
  - Blindness [Unknown]
  - Rheumatoid arthritis [Unknown]
  - Arthropathy [Unknown]
  - Back pain [Not Recovered/Not Resolved]
  - Pain [Recovering/Resolving]
  - Post procedural infection [Recovering/Resolving]
  - Drug effect delayed [Unknown]
  - Influenza [Unknown]
  - Cataract [Unknown]
  - Cataract operation complication [Unknown]
  - Arthralgia [Unknown]
  - Eye infection [Unknown]

NARRATIVE: CASE EVENT DATE: 2018
